FAERS Safety Report 14869654 (Version 2)
Quarter: 2018Q2

REPORT INFORMATION
  Report Type: Report from Study
  Country: US (occurrence: US)
  Receive Date: 20180509
  Receipt Date: 20180627
  Transmission Date: 20180711
  Serious: Yes (Hospitalization)
  Sender: FDA-Public Use
  Company Number: US-ROCHE-2115087

PATIENT
  Age: 34 Year
  Sex: Female
  Weight: 80 kg

DRUGS (4)
  1. BLINDED ATEZOLIZUMAB [Suspect]
     Active Substance: ATEZOLIZUMAB
     Dosage: RESTARTED CYCLE 5
     Route: 042
     Dates: start: 20180413
  2. PACLITAXEL. [Suspect]
     Active Substance: PACLITAXEL
     Indication: BREAST CANCER
     Dosage: THE PATIENT WILL RECEIVE PACLITAXEL 80 MG/M2 IV WEEKLY X 12 DOSES (AS PER PROTOCOL).?(MOST RECENT DO
     Route: 042
     Dates: start: 20180105
  3. BLINDED ATEZOLIZUMAB [Suspect]
     Active Substance: ATEZOLIZUMAB
     Indication: BREAST CANCER
     Dosage: MOST RECENT DOSE OF BLINDED ATEZOLIZUMAB WAS RECEIVED ON 09/MAR/2018 PRIOR TO EVENT ONSET.?INTERRUPT
     Route: 042
     Dates: start: 20180105, end: 20180406
  4. CARBOPLATIN. [Suspect]
     Active Substance: CARBOPLATIN
     Indication: BREAST CANCER
     Dosage: CARBOPLATIN AUC OF 5 IV DAY 1 EVERY 3 WEEKS FOR 4 CYCLES (AS PER PROTOCOL).?MOST RECENT DOSE OF CARB
     Route: 042
     Dates: start: 20180105

REACTIONS (2)
  - Pulmonary embolism [Recovering/Resolving]
  - Pulmonary infarction [Recovering/Resolving]

NARRATIVE: CASE EVENT DATE: 20180405
